FAERS Safety Report 11788214 (Version 2)
Quarter: 2015Q4

REPORT INFORMATION
  Report Type: Spontaneous
  Country: US (occurrence: US)
  Receive Date: 20151201
  Receipt Date: 20151201
  Transmission Date: 20160305
  Serious: Yes (Other)
  Sender: FDA-Public Use
  Company Number: US-HOSPIRA-2708199

PATIENT
  Age: 66 Year

DRUGS (3)
  1. BENDAMUSTINE [Suspect]
     Active Substance: BENDAMUSTINE
     Indication: CHRONIC LYMPHOCYTIC LEUKAEMIA
     Dosage: 2 DAYS PER 28 DAY CYCLE
     Route: 042
     Dates: start: 20120622, end: 20121115
  2. OFATUMUMAB [Suspect]
     Active Substance: OFATUMUMAB
     Indication: CHRONIC LYMPHOCYTIC LEUKAEMIA
     Dosage: ONCE PER 28 DAY CYCLE
     Route: 042
     Dates: start: 20120622, end: 20121115
  3. PENTOSTATIN. [Suspect]
     Active Substance: PENTOSTATIN
     Indication: CHRONIC LYMPHOCYTIC LEUKAEMIA
     Dosage: ONCE PER 28 DAY CYCLE
     Route: 042
     Dates: start: 20120622, end: 20121115

REACTIONS (1)
  - Sinusitis [Unknown]

NARRATIVE: CASE EVENT DATE: 20120717
